FAERS Safety Report 15518319 (Version 2)
Quarter: 2018Q4

REPORT INFORMATION
  Report Type: Spontaneous
  Country: US (occurrence: US)
  Receive Date: 20181017
  Receipt Date: 20181105
  Transmission Date: 20190205
  Serious: Yes (Hospitalization)
  Sender: FDA-Public Use
  Company Number: US-FRESENIUS MEDICAL CARE RENAL THERAPIES GROUP-FMC-1810-001822

PATIENT
  Sex: Male
  Weight: 78 kg

DRUGS (3)
  1. DELFLEX WITH DEXTROSE 2.5% LOW MAGNESIUM LOW CALCIUM [Suspect]
     Active Substance: CALCIUM CHLORIDE\DEXTROSE\MAGNESIUM CHLORIDE\SODIUM CHLORIDE\SODIUM LACTATE
     Indication: END STAGE RENAL DISEASE
     Dosage: TREATMENT REGIMEN INCLUDES FOUR FILLS OF 2300ML AND A LAST FILL OF 1500ML.
     Route: 033
     Dates: end: 201808
  2. METPROLOL [Concomitant]
     Active Substance: METOPROLOL
     Dosage: 25MG GIVEN ORALLY TWICE A DAY.
     Route: 048
  3. GENTAMYCIN [Concomitant]
     Active Substance: GENTAMICIN

REACTIONS (2)
  - Peritonitis [Recovering/Resolving]
  - Bloody peritoneal effluent [Recovering/Resolving]
